FAERS Safety Report 4863236-1 (Version None)
Quarter: 2005Q4

REPORT INFORMATION
  Report Type: 
  Country: None (occurrence: None)
  Receive Date: 20051219
  Receipt Date: 20051207
  Transmission Date: 20060501
  Serious: Yes (Other)
  Sender: FDA-Public Use
  Company Number: 2005165934

PATIENT
  Sex: Male
  Weight: 92.9874 kg

DRUGS (5)
  1. BEXTRA [Suspect]
     Indication: RHEUMATOID ARTHRITIS
     Dates: start: 20010101
  2. VIAGRA [Suspect]
     Indication: ERECTILE DYSFUNCTION
     Dates: start: 20040101
  3. VIOXX [Suspect]
     Indication: RHEUMATOID ARTHRITIS
     Dates: end: 20020101
  4. CIALIS [Suspect]
     Indication: ERECTILE DYSFUNCTION
  5. LEVITRA [Suspect]
     Indication: ERECTILE DYSFUNCTION

REACTIONS (13)
  - BLOOD PRESSURE DECREASED [None]
  - BLOOD PRESSURE INCREASED [None]
  - BRONCHITIS [None]
  - CONDITION AGGRAVATED [None]
  - DEHYDRATION [None]
  - DRUG INEFFECTIVE [None]
  - ERECTILE DYSFUNCTION [None]
  - GASTRIC ULCER [None]
  - HEADACHE [None]
  - INFLUENZA [None]
  - JOINT SWELLING [None]
  - LOSS OF CONSCIOUSNESS [None]
  - PAIN [None]
